FAERS Safety Report 18856189 (Version 1)
Quarter: 2021Q1

REPORT INFORMATION
  Report Type: Spontaneous
  Country: US (occurrence: US)
  Receive Date: 20210206
  Receipt Date: 20210206
  Transmission Date: 20210420
  Serious: No
  Sender: FDA-Public Use
  Company Number: US-TEVA-2021-US-1873827

PATIENT
  Age: 19 Year
  Sex: Female
  Weight: 52.16 kg

DRUGS (1)
  1. KARIVA [Suspect]
     Active Substance: DESOGESTREL\ETHINYL ESTRADIOL
     Indication: POLYCYSTIC OVARIES
     Route: 065

REACTIONS (9)
  - Rash [Unknown]
  - Ovulation pain [Unknown]
  - Dysmenorrhoea [Unknown]
  - Off label use [Unknown]
  - Metrorrhagia [Unknown]
  - Menorrhagia [Unknown]
  - Extra dose administered [Unknown]
  - Acne [Unknown]
  - Product dose omission issue [Unknown]

NARRATIVE: CASE EVENT DATE: 202010
